FAERS Safety Report 5522019-X (Version None)
Quarter: 2007Q4

REPORT INFORMATION
  Report Type: 
  Country: None (occurrence: None)
  Receive Date: 20071120
  Receipt Date: 20071116
  Transmission Date: 20080405
  Serious: Yes (Hospitalization)
  Sender: FDA-Public Use
  Company Number: US-AVENTIS-200718098US

PATIENT
  Age: 56 Year
  Sex: Male

DRUGS (2)
  1. LANTUS [Suspect]
     Dosage: DOSE: UNK
  2. HUMALOG [Concomitant]
     Dosage: DOSE: UNK

REACTIONS (3)
  - HYPOGLYCAEMIA [None]
  - INCOHERENT [None]
  - URINARY TRACT INFECTION [None]
